FAERS Safety Report 25181489 (Version 1)
Quarter: 2025Q2

REPORT INFORMATION
  Report Type: Report from Study
  Country: GB (occurrence: GB)
  Receive Date: 20250410
  Receipt Date: 20250410
  Transmission Date: 20250717
  Serious: Yes (Hospitalization, Other)
  Sender: ALIMERA
  Company Number: GB-ALIMERA SCIENCES LIMITED-GB-IL-2016-003980

PATIENT
  Age: 57 Year
  Sex: Female

DRUGS (8)
  1. ILUVIEN [Suspect]
     Active Substance: FLUOCINOLONE ACETONIDE
     Indication: Diabetic retinal oedema
     Dosage: 0.25 ?G, QD - RIGHT EYE
     Route: 031
     Dates: start: 20140626
  2. ILUVIEN [Suspect]
     Active Substance: FLUOCINOLONE ACETONIDE
     Dosage: 0.25 ?G, QD - LEFT EYE
     Route: 031
     Dates: start: 20140922
  3. INSULIN NOS [Concomitant]
     Active Substance: INSULIN NOS
     Indication: Diabetes mellitus
     Dates: start: 19880101
  4. BIMATOPROST\TIMOLOL [Concomitant]
     Active Substance: BIMATOPROST\TIMOLOL
     Indication: Intraocular pressure increased
     Dates: start: 20170818
  5. SIMBRINZA [Concomitant]
     Active Substance: BRIMONIDINE TARTRATE\BRINZOLAMIDE
     Indication: Intraocular pressure increased
     Dates: start: 20170818
  6. MAXIDEX [Concomitant]
     Active Substance: DEXAMETHASONE
     Indication: Prophylaxis
     Dates: start: 20180126
  7. CHLORAMPHENICOL [Concomitant]
     Active Substance: CHLORAMPHENICOL
     Indication: Prophylaxis
     Dates: start: 20180126, end: 20180209
  8. ACETAZOLAMIDE [Concomitant]
     Active Substance: ACETAZOLAMIDE
     Indication: Intraocular pressure increased
     Dates: start: 20170314, end: 20180126

REACTIONS (2)
  - Intraocular pressure increased [Recovered/Resolved]
  - Medical device implantation [Recovered/Resolved]

NARRATIVE: CASE EVENT DATE: 20180126
